FAERS Safety Report 6609136-8 (Version None)
Quarter: 2010Q1

REPORT INFORMATION
  Report Type: 
  Country: None (occurrence: None)
  Receive Date: 20100212
  Receipt Date: 20100201
  Transmission Date: 20100710
  Serious: Yes (Other)
  Sender: FDA-Public Use
  Company Number: US-144883

PATIENT
  Sex: Female
  Weight: 93.8946 kg

DRUGS (8)
  1. WINRHO SDF LIQUID [Suspect]
     Indication: IDIOPATHIC THROMBOCYTOPENIC PURPURA
     Dosage: 49.95 UG/KG TOTAL; INTRAVENOUS (NOT OTHERWISE SPECIFIED)
     Route: 042
     Dates: start: 20091028, end: 20091028
  2. DEXTROSE [Concomitant]
  3. DEXAMETHASONE SODIUM PHOSPHATE EIPICO [Concomitant]
  4. IRON SUCROSE [Concomitant]
  5. MORPHINE [Concomitant]
  6. PROCHLORPERAZINE [Concomitant]
  7. SODIUM CHLORIDE [Concomitant]
  8. ONDANSETRON [Concomitant]

REACTIONS (2)
  - DRUG INEFFECTIVE [None]
  - HAEMOLYTIC ANAEMIA [None]
